FAERS Safety Report 7818225-1 (Version None)
Quarter: 2011Q4

REPORT INFORMATION
  Report Type: 
  Country: None (occurrence: None)
  Receive Date: 20111017
  Receipt Date: 20111012
  Transmission Date: 20120403
  Serious: Yes (Death, Hospitalization, Other)
  Sender: FDA-Public Use
  Company Number: NO-PFIZER INC-NO-WYE-H08571909

PATIENT
  Sex: Male

DRUGS (15)
  1. ALLOPURINOL [Concomitant]
     Route: 048
  2. AMIODARONE HCL [Interacting]
     Dosage: TOTAL OF 1500 MG
     Route: 042
     Dates: start: 20081212, end: 20081214
  3. BUMETANIDE [Concomitant]
     Route: 048
  4. MONOKET OD [Concomitant]
     Route: 048
  5. POTASSIUM CHLORIDE [Concomitant]
     Route: 065
  6. FRAGMIN [Interacting]
     Indication: ATRIAL FIBRILLATION
     Dosage: 7.500 IU, 2X/DAY
     Route: 058
     Dates: start: 20081209, end: 20081222
  7. METFORMIN [Concomitant]
     Route: 048
  8. PENICILLIN V POTASSIUM [Concomitant]
     Route: 065
  9. CORDARONE [Suspect]
     Indication: ATRIAL FIBRILLATION
     Dosage: GRADUALLY REDUCED DOSES
     Route: 048
     Dates: start: 20081215, end: 20081226
  10. WARFARIN SODIUM [Interacting]
     Indication: ATRIAL FIBRILLATION
     Dosage: UNSPECIFIED
     Route: 048
     Dates: start: 20081210, end: 20081223
  11. AMARYL [Concomitant]
     Route: 048
  12. METOPROLOL SUCCINATE [Concomitant]
     Route: 048
  13. AMIODARONE HCL [Interacting]
     Indication: ATRIAL FIBRILLATION
     Dosage: 300 MG BOLUS
     Route: 042
     Dates: start: 20081211, end: 20081211
  14. ARTHROTEC [Interacting]
     Dosage: UNSPECIFIED
     Route: 048
     Dates: start: 20081224, end: 20081226
  15. PREDNISOLONE [Concomitant]
     Route: 048

REACTIONS (4)
  - MYOCARDIAL INFARCTION [None]
  - DRUG INTERACTION [None]
  - HAEMORRHAGIC ANAEMIA [None]
  - FALL [None]
